FAERS Safety Report 23863181 (Version 1)
Quarter: 2024Q2

REPORT INFORMATION
  Report Type: Spontaneous
  Country: CN (occurrence: CN)
  Receive Date: 20240516
  Receipt Date: 20240516
  Transmission Date: 20240715
  Serious: Yes (Other)
  Sender: FDA-Public Use
  Company Number: CN-PFIZER INC-PV202400062952

PATIENT
  Age: 73 Year
  Sex: Male
  Weight: 64 kg

DRUGS (7)
  1. NIRMATRELVIR\RITONAVIR [Suspect]
     Active Substance: NIRMATRELVIR\RITONAVIR
     Indication: COVID-19 treatment
     Dosage: 3 DF, 2X/DAY
     Route: 048
     Dates: start: 20240323, end: 20240328
  2. HERBALS [Suspect]
     Active Substance: HERBALS
     Indication: Haemorrhagic fever
     Dosage: 6 G, 1X/DAY
     Route: 048
     Dates: start: 20240401, end: 20240403
  3. IBUPROFEN [Suspect]
     Active Substance: IBUPROFEN
     Indication: Pyrexia
     Dosage: 200 G, 1X/DAY
     Route: 048
     Dates: start: 20240323, end: 20240324
  4. CEFTRIAXONE SODIUM [Suspect]
     Active Substance: CEFTRIAXONE SODIUM
     Indication: Infection
     Dosage: 2 G, 1X/DAY
     Route: 041
     Dates: start: 20240323, end: 20240329
  5. LICORICE [Suspect]
     Active Substance: LICORICE
     Indication: Haemorrhagic fever
     Dosage: 10G, 1X/DAY
     Route: 048
     Dates: start: 20240401, end: 20240403
  6. SCUTELLARIA BAICALENSIS ROOT [Suspect]
     Active Substance: SCUTELLARIA BAICALENSIS ROOT
     Indication: Haemorrhagic fever
     Dosage: 15 G, 1X/DAY
     Route: 048
     Dates: start: 20240401, end: 20240403
  7. SODIUM CHLORIDE [Concomitant]
     Active Substance: SODIUM CHLORIDE
     Indication: Vehicle solution use
     Dosage: 100 ML, 1X/DAY
     Route: 041
     Dates: start: 20240323, end: 20240329

REACTIONS (2)
  - Hepatic function abnormal [Recovered/Resolved]
  - Drug-induced liver injury [Recovered/Resolved]

NARRATIVE: CASE EVENT DATE: 20240404
